FAERS Safety Report 17661561 (Version 1)
Quarter: 2020Q2

REPORT INFORMATION
  Report Type: Spontaneous
  Country: US (occurrence: US)
  Receive Date: 20200410
  Receipt Date: 20200410
  Transmission Date: 20200713
  Serious: Yes (Death)
  Sender: FDA-Public Use
  Company Number: None

PATIENT
  Age: 70 Year
  Sex: Female

DRUGS (13)
  1. ONDANSETRON [Concomitant]
     Active Substance: ONDANSETRON
  2. FLASP FLEX [Concomitant]
  3. FLUOXETINE [Concomitant]
     Active Substance: FLUOXETINE HYDROCHLORIDE
  4. NARCAN [Concomitant]
     Active Substance: NALOXONE HYDROCHLORIDE
  5. MORPHINE SUL [Concomitant]
     Active Substance: MORPHINE SULFATE
  6. OXYCODONE [Concomitant]
     Active Substance: OXYCODONE
  7. AMOXICILLIN. [Concomitant]
     Active Substance: AMOXICILLIN
  8. GABAPENTIN. [Concomitant]
     Active Substance: GABAPENTIN
  9. OMEPRAZOLE. [Concomitant]
     Active Substance: OMEPRAZOLE
  10. ARIPIPRAZOLE. [Concomitant]
     Active Substance: ARIPIPRAZOLE
  11. PANTOPRAZOLE [Concomitant]
     Active Substance: PANTOPRAZOLE
  12. SANDOSTATIN LAR DEPOT [Suspect]
     Active Substance: OCTREOTIDE ACETATE
     Indication: PRODUCT USED FOR UNKNOWN INDICATION
     Dosage: OTHER FREQUENCY: EVERY 4 WEEKS
     Route: 030
     Dates: start: 20180724, end: 20200317
  13. NITROFUR MAC [Concomitant]
     Active Substance: NITROFURANTOIN

REACTIONS (1)
  - Death [None]

NARRATIVE: CASE EVENT DATE: 20200317
